FAERS Safety Report 13603109 (Version 1)
Quarter: 2017Q2

REPORT INFORMATION
  Report Type: Spontaneous
  Country: US (occurrence: US)
  Receive Date: 20170601
  Receipt Date: 20170601
  Transmission Date: 20170830
  Serious: Yes (Other)
  Sender: FDA-Public Use
  Company Number: US-SA-2017SA095902

PATIENT
  Sex: Male

DRUGS (13)
  1. BIDIL [Suspect]
     Active Substance: HYDRALAZINE HYDROCHLORIDE\ISOSORBIDE DINITRATE
     Route: 048
  2. PROTONIX [Suspect]
     Active Substance: PANTOPRAZOLE SODIUM
     Route: 065
  3. ASPIRIN. [Suspect]
     Active Substance: ASPIRIN
     Route: 065
  4. LAMICTAL [Suspect]
     Active Substance: LAMOTRIGINE
     Route: 065
  5. NOVOLOG [Suspect]
     Active Substance: INSULIN ASPART
     Dosage: SLIDING SCALE?FORM: SOLUTION
     Route: 065
  6. DIGOXIN. [Suspect]
     Active Substance: DIGOXIN
     Route: 048
  7. CARVEDILOL. [Suspect]
     Active Substance: CARVEDILOL
     Dosage: 2 TABLETS IN THE MORNING AND 1 TABLET AT NIGHTTIME
     Route: 065
  8. KEPPRA [Suspect]
     Active Substance: LEVETIRACETAM
     Route: 048
  9. LANTUS [Suspect]
     Active Substance: INSULIN GLARGINE
     Route: 051
  10. FISH OIL [Suspect]
     Active Substance: FISH OIL
     Route: 065
  11. FUROSEMIDE. [Suspect]
     Active Substance: FUROSEMIDE
     Route: 048
  12. FLOMAX [Suspect]
     Active Substance: TAMSULOSIN HYDROCHLORIDE
     Route: 048
  13. VITAMIN D3 [Suspect]
     Active Substance: CHOLECALCIFEROL
     Route: 048

REACTIONS (18)
  - Palpitations [Unknown]
  - Neck pain [Unknown]
  - Dyspnoea [Unknown]
  - Atrial fibrillation [Unknown]
  - Fatigue [Unknown]
  - Sleep apnoea syndrome [Unknown]
  - Pain in extremity [Unknown]
  - Hypertension [Unknown]
  - Cardiomyopathy [Unknown]
  - Obesity [Unknown]
  - Angiopathy [Unknown]
  - Hypoaesthesia [Unknown]
  - Pericardial effusion [Unknown]
  - Essential hypertension [Unknown]
  - Atrial flutter [Unknown]
  - Diabetes mellitus [Unknown]
  - Hyperlipidaemia [Unknown]
  - Diabetic nephropathy [Unknown]
